FAERS Safety Report 5927617-7 (Version None)
Quarter: 2008Q4

REPORT INFORMATION
  Report Type: 
  Country: None (occurrence: None)
  Receive Date: 20081021
  Receipt Date: 20081021
  Transmission Date: 20090506
  Serious: No
  Sender: FDA-Public Use
  Company Number: None

PATIENT
  Age: 42 Year
  Sex: Female
  Weight: 48.0813 kg

DRUGS (3)
  1. NYSTATIN [Suspect]
     Indication: CANDIDIASIS
     Dosage: 2 TEAS 3 X DAY PO
     Route: 048
     Dates: start: 20081018, end: 20081019
  2. DILANTIN [Concomitant]
  3. KLONIPAN [Concomitant]

REACTIONS (5)
  - CHILLS [None]
  - ERYTHEMA [None]
  - HEADACHE [None]
  - HEART RATE INCREASED [None]
  - PRURITUS [None]
